FAERS Safety Report 5889187-1 (Version None)
Quarter: 2008Q3

REPORT INFORMATION
  Report Type: 
  Country: None (occurrence: None)
  Receive Date: 20080919
  Receipt Date: 20080910
  Transmission Date: 20090109
  Serious: Yes (Hospitalization)
  Sender: FDA-Public Use
  Company Number: PHHO2008US11038

PATIENT
  Sex: Male
  Weight: 107.94 kg

DRUGS (5)
  1. MYCOPHENOLIC ACID [Suspect]
     Indication: RENAL TRANSPLANT
     Dosage: 720 MG, BID
     Route: 048
     Dates: start: 20080717
  2. MYCOPHENOLIC ACID [Suspect]
     Dosage: 180 MG, BID
     Route: 048
     Dates: start: 20080908
  3. MYCOPHENOLIC ACID [Suspect]
     Dosage: 360 MG, BID
     Route: 048
     Dates: start: 20080910
  4. TACROLIMUS [Concomitant]
     Indication: RENAL TRANSPLANT
  5. PREDNISONE [Concomitant]
     Indication: RENAL TRANSPLANT
     Dosage: UNK

REACTIONS (11)
  - ABDOMINAL PAIN LOWER [None]
  - ANOREXIA [None]
  - COUGH [None]
  - DYSPNOEA [None]
  - LOCALISED INTRAABDOMINAL FLUID COLLECTION [None]
  - MALAISE [None]
  - OROPHARYNGEAL PAIN [None]
  - RETCHING [None]
  - RHINORRHOEA [None]
  - VIRAL INFECTION [None]
  - VOMITING [None]
